FAERS Safety Report 18709145 (Version 3)
Quarter: 2021Q1

REPORT INFORMATION
  Report Type: Spontaneous
  Country: US (occurrence: US)
  Receive Date: 20210107
  Receipt Date: 20210210
  Transmission Date: 20210419
  Serious: No
  Sender: FDA-Public Use
  Company Number: US-AMGEN-USASP2021000759

PATIENT
  Age: 63 Year
  Sex: Female

DRUGS (8)
  1. NPLATE [Suspect]
     Active Substance: ROMIPLOSTIM
     Dosage: 15 MICROGRAM/KILOGRAM, QWK
     Route: 058
     Dates: start: 20201230
  2. MULTIVITAMIN [ASCORBIC ACID;BIOTIN;CALCIUM PANTOTHENATE;CYANOCOBALAMIN [Concomitant]
     Active Substance: VITAMINS
     Dosage: UNK UNK, QD
     Route: 048
  3. ZOFRAN [Concomitant]
     Active Substance: ONDANSETRON HYDROCHLORIDE
     Indication: VOMITING
  4. ZOFRAN [Concomitant]
     Active Substance: ONDANSETRON HYDROCHLORIDE
     Indication: NAUSEA
     Dosage: 4 MILLIGRAM, Q8H
  5. NPLATE [Suspect]
     Active Substance: ROMIPLOSTIM
     Dosage: 10 MICROGRAM/KILOGRAM, QWK
     Route: 058
     Dates: start: 2020
  6. LACTOBACILLUS ACIDOPHILUS [Concomitant]
     Active Substance: LACTOBACILLUS ACIDOPHILUS
     Dosage: UNK UNK, QD
     Route: 048
  7. NPLATE [Suspect]
     Active Substance: ROMIPLOSTIM
     Indication: IMMUNE THROMBOCYTOPENIA
     Dosage: UNK
     Route: 058
     Dates: start: 202008
  8. SODIUM CHLORIDE. [Concomitant]
     Active Substance: SODIUM CHLORIDE
     Dosage: 0.9 PERCENT, 2?4 DAILY
     Route: 045

REACTIONS (13)
  - Gingival bleeding [Unknown]
  - Joint swelling [Unknown]
  - Arthralgia [Unknown]
  - Contusion [Unknown]
  - Therapeutic product effect decreased [Unknown]
  - Joint stiffness [Unknown]
  - Platelet count decreased [Unknown]
  - Peripheral swelling [Unknown]
  - Back pain [Unknown]
  - Epistaxis [Unknown]
  - Dyspnoea exertional [Unknown]
  - Sinus congestion [Unknown]
  - Fatigue [Unknown]

NARRATIVE: CASE EVENT DATE: 2020
